FAERS Safety Report 14514695 (Version 1)
Quarter: 2018Q1

REPORT INFORMATION
  Report Type: Spontaneous
  Country: US (occurrence: US)
  Receive Date: 20180209
  Receipt Date: 20180209
  Transmission Date: 20180509
  Serious: Yes (Other)
  Sender: FDA-Public Use
  Company Number: US-JAZZ-2018-US-001843

PATIENT
  Age: 45 Year
  Sex: Male
  Weight: 131.52 kg

DRUGS (12)
  1. FENTANYL. [Suspect]
     Active Substance: FENTANYL
     Dosage: 3.75 ?G, QH
     Route: 037
     Dates: start: 20170711
  2. BUPIVACAINE. [Suspect]
     Active Substance: BUPIVACAINE
     Dosage: 0.180 MG, QH
     Route: 037
     Dates: start: 20170711
  3. PRIALT [Suspect]
     Active Substance: ZICONOTIDE ACETATE
     Dosage: 0.052 ?G, QH
     Route: 037
     Dates: start: 201708
  4. FENTANYL. [Suspect]
     Active Substance: FENTANYL
     Indication: PRODUCT USED FOR UNKNOWN INDICATION
     Dosage: 2.917 ?G, QH
     Route: 037
     Dates: start: 20170418
  5. PRIALT [Suspect]
     Active Substance: ZICONOTIDE ACETATE
     Indication: PRODUCT USED FOR UNKNOWN INDICATION
     Dosage: 0.05 ?G, QH
     Route: 037
     Dates: start: 201708, end: 201708
  6. BUPIVACAINE. [Suspect]
     Active Substance: BUPIVACAINE
     Dosage: 0.119 MG, QH
     Dates: start: 20170822
  7. FENTANYL. [Suspect]
     Active Substance: FENTANYL
     Dosage: 2.497 ?G, QH
     Route: 037
     Dates: start: 20170822
  8. FENTANYL. [Suspect]
     Active Substance: FENTANYL
     Dosage: 3.213 ?G, QH
     Route: 037
     Dates: start: 20170425, end: 20170801
  9. BUPIVACAINE. [Suspect]
     Active Substance: BUPIVACAINE
     Indication: PRODUCT USED FOR UNKNOWN INDICATION
     Dosage: 0.14 MG, QH
     Route: 037
     Dates: start: 20170418
  10. BUPIVACAINE. [Suspect]
     Active Substance: BUPIVACAINE
     Dosage: 0.154 MG, QH
     Route: 037
     Dates: start: 20170425, end: 20170801
  11. BUPIVACAINE. [Suspect]
     Active Substance: BUPIVACAINE
     Dosage: 0.119 MG, QH
     Route: 037
     Dates: start: 20170822
  12. FENTANYL. [Suspect]
     Active Substance: FENTANYL
     Dosage: 2.50 ?G, QH
     Route: 037
     Dates: start: 20170822

REACTIONS (12)
  - Chemotherapy [Unknown]
  - Drug ineffective [Not Recovered/Not Resolved]
  - Anxiety [Recovered/Resolved]
  - Restless legs syndrome [Recovered/Resolved]
  - Myalgia [Recovered/Resolved]
  - Drug ineffective [Recovered/Resolved]
  - Nausea [Recovered/Resolved]
  - Muscle spasms [Recovered/Resolved]
  - Loss of personal independence in daily activities [Recovered/Resolved]
  - Tremor [Recovered/Resolved]
  - Hyperhidrosis [Recovered/Resolved]
  - Cellulitis [Recovered/Resolved]

NARRATIVE: CASE EVENT DATE: 20170803
